FAERS Safety Report 8214209-2 (Version None)
Quarter: 2012Q1

REPORT INFORMATION
  Report Type: 
  Country: None (occurrence: None)
  Receive Date: 20120316
  Receipt Date: 20120313
  Transmission Date: 20120608
  Serious: Yes (Death, Other)
  Sender: FDA-Public Use
  Company Number: CN-PFIZER INC-2012066450

PATIENT
  Age: 67 Year
  Sex: Female

DRUGS (1)
  1. SUTENT [Suspect]
     Indication: RENAL CELL CARCINOMA
     Dosage: UNK

REACTIONS (4)
  - PLATELET COUNT DECREASED [None]
  - DEATH [None]
  - GASTRIC HAEMORRHAGE [None]
  - INFECTION [None]
